FAERS Safety Report 23655858 (Version 2)
Quarter: 2024Q1

REPORT INFORMATION
  Report Type: Spontaneous
  Country: BR (occurrence: BR)
  Receive Date: 20240321
  Receipt Date: 20240329
  Transmission Date: 20240410
  Serious: Yes (Other)
  Sender: FDA-Public Use
  Company Number: BR-002147023-NVSC2024BR057725

PATIENT
  Sex: Female

DRUGS (2)
  1. AZOPT [Suspect]
     Active Substance: BRINZOLAMIDE
     Dosage: UNK
     Route: 065
  2. AZOPT [Suspect]
     Active Substance: BRINZOLAMIDE
     Indication: Intraocular pressure increased
     Dosage: UNK,
     Route: 065

REACTIONS (2)
  - Cataract [Unknown]
  - Visual impairment [Unknown]
